FAERS Safety Report 9434294 (Version 1)
Quarter: 2013Q3

REPORT INFORMATION
  Report Type: Spontaneous
  Country: US (occurrence: US)
  Receive Date: 20130801
  Receipt Date: 20130801
  Transmission Date: 20140515
  Serious: Yes (Hospitalization, Other)
  Sender: FDA-Public Use
  Company Number: US-ELI_LILLY_AND_COMPANY-US201307008065

PATIENT
  Age: 73 Year
  Sex: Female

DRUGS (1)
  1. CYMBALTA [Suspect]
     Indication: FIBROMYALGIA
     Dosage: 60 MG, QD

REACTIONS (9)
  - Road traffic accident [Unknown]
  - Cardiac disorder [Unknown]
  - Diabetes mellitus [Recovered/Resolved]
  - Coordination abnormal [Not Recovered/Not Resolved]
  - Muscle contracture [Unknown]
  - Balance disorder [Unknown]
  - Gait disturbance [Unknown]
  - Pruritus [Unknown]
  - Weight decreased [Unknown]
